FAERS Safety Report 8062891-5 (Version None)
Quarter: 2012Q1

REPORT INFORMATION
  Report Type: 
  Country: None (occurrence: None)
  Receive Date: 20120123
  Receipt Date: 20120123
  Transmission Date: 20120608
  Serious: Yes (Hospitalization)
  Sender: FDA-Public Use
  Company Number: None

PATIENT
  Sex: Female
  Weight: 44.4 kg

DRUGS (1)
  1. ZYRTEC [Suspect]
     Indication: MULTIPLE ALLERGIES
     Dates: start: 20101101, end: 20111115

REACTIONS (7)
  - BILIRUBIN CONJUGATED INCREASED [None]
  - SPLENOMEGALY [None]
  - POST PROCEDURAL HAEMORRHAGE [None]
  - LIVER INJURY [None]
  - ULTRASOUND LIVER ABNORMAL [None]
  - TRANSAMINASES INCREASED [None]
  - HEPATOTOXICITY [None]
